FAERS Safety Report 10432444 (Version 1)
Quarter: 2014Q3

REPORT INFORMATION
  Report Type: Spontaneous
  Country: US (occurrence: None)
  Receive Date: 20140815
  Receipt Date: 20140815
  Transmission Date: 20150326
  Serious: No
  Sender: FDA-Public Use
  Company Number: A-NJ2014-099608

PATIENT
  Age: 71 Year
  Sex: Male

DRUGS (3)
  1. REMODULIN (TREPROSTINIL SODIUM) [Suspect]
     Active Substance: TREPROSTINIL
  2. WARFARIN [Concomitant]
     Active Substance: WARFARIN
  3. OPSUMIT [Suspect]
     Active Substance: MACITENTAN
     Indication: COR PULMONALE CHRONIC
     Route: 048
     Dates: start: 20131212

REACTIONS (4)
  - Diarrhoea [None]
  - Headache [None]
  - Catheter site erythema [None]
  - Catheter site pain [None]
